FAERS Safety Report 11095736 (Version 1)
Quarter: 2015Q2

REPORT INFORMATION
  Report Type: Spontaneous
  Country: US (occurrence: US)
  Receive Date: 20150507
  Receipt Date: 20150507
  Transmission Date: 20150821
  Serious: No
  Sender: FDA-Public Use
  Company Number: US-BRISTOL-MYERS SQUIBB COMPANY-BMS-2015-028455

PATIENT
  Sex: Female

DRUGS (1)
  1. KENALOG-40 [Suspect]
     Active Substance: TRIAMCINOLONE ACETONIDE
     Indication: SINUSITIS
     Dosage: UNK
     Route: 065
     Dates: start: 201411

REACTIONS (5)
  - Skin atrophy [Unknown]
  - Hot flush [Unknown]
  - Headache [Unknown]
  - Night sweats [Unknown]
  - Nausea [Unknown]
